FAERS Safety Report 9048538 (Version 1)
Quarter: 2013Q1

REPORT INFORMATION
  Report Type: Spontaneous
  Country: US (occurrence: None)
  Receive Date: 20130130
  Receipt Date: 20130130
  Transmission Date: 20140127
  Serious: Yes (Hospitalization)
  Sender: FDA-Public Use
  Company Number: None

PATIENT
  Age: 80 Year
  Sex: Male
  Weight: 83.4 kg

DRUGS (16)
  1. XARELTO [Suspect]
     Indication: ATRIAL FIBRILLATION
     Dosage: 15 QPM
     Route: 048
  2. NORVASC [Concomitant]
  3. NASAL SPRAY [Concomitant]
  4. LIPITOR [Concomitant]
  5. DILTIAZEM [Concomitant]
  6. ADVAIR DISKUS [Concomitant]
  7. SINGULAIR [Concomitant]
  8. SPIRONOLACTONE [Concomitant]
  9. ALBUTEROL [Concomitant]
  10. IPRATROPIUM [Concomitant]
  11. PULMICORT [Concomitant]
  12. FLONASE [Concomitant]
  13. LOVAZA [Concomitant]
  14. XOPENEX [Concomitant]
  15. MVI [Concomitant]
  16. VIT C [Concomitant]

REACTIONS (2)
  - Haematuria [None]
  - Chronic obstructive pulmonary disease [None]
